FAERS Safety Report 5333604-2 (Version None)
Quarter: 2007Q2

REPORT INFORMATION
  Report Type: 
  Country: None (occurrence: None)
  Receive Date: 20070524
  Receipt Date: 20070517
  Transmission Date: 20071010
  Serious: Yes (Hospitalization, Other)
  Sender: FDA-Public Use
  Company Number: ES-BRISTOL-MYERS SQUIBB COMPANY-13783006

PATIENT
  Age: 29 Year
  Sex: Female

DRUGS (6)
  1. EFAVIRENZ [Suspect]
     Indication: ACQUIRED IMMUNODEFICIENCY SYNDROME
  2. STAVUDINE [Suspect]
     Indication: ACQUIRED IMMUNODEFICIENCY SYNDROME
  3. LAMIVUDINE [Suspect]
     Indication: ACQUIRED IMMUNODEFICIENCY SYNDROME
  4. COMBIVIR [Suspect]
     Indication: ACQUIRED IMMUNODEFICIENCY SYNDROME
  5. NELFINAVIR [Suspect]
     Indication: ACQUIRED IMMUNODEFICIENCY SYNDROME
  6. METHADONE HCL [Concomitant]

REACTIONS (5)
  - DEPRESSION [None]
  - NORMAL NEWBORN [None]
  - PNEUMONIA PNEUMOCOCCAL [None]
  - PREGNANCY [None]
  - RESPIRATORY FAILURE [None]
